FAERS Safety Report 6558680-0 (Version None)
Quarter: 2010Q1

REPORT INFORMATION
  Report Type: 
  Country: None (occurrence: None)
  Receive Date: 20100129
  Receipt Date: 20100120
  Transmission Date: 20100710
  Serious: Yes (Hospitalization)
  Sender: FDA-Public Use
  Company Number: GB-JNJFOC-20090601696

PATIENT
  Age: 9 Year
  Sex: Female
  Weight: 21.6 kg

DRUGS (9)
  1. REMICADE [Suspect]
     Indication: CROHN'S DISEASE
     Dosage: 1 INFUSION TOTAL
     Route: 042
  2. CORTICOSTEROID [Concomitant]
     Indication: CROHN'S DISEASE
     Route: 042
  3. METRONIDAZOLE [Concomitant]
     Dosage: STARTED 11/5
  4. VANCOMYCIN [Concomitant]
  5. CEFOTAXIME [Concomitant]
  6. PARACETAMOL [Concomitant]
  7. ENOXAPARIN SODIUM [Concomitant]
     Route: 058
  8. MORPHINE [Concomitant]
  9. HYDROCORTISONE [Concomitant]

REACTIONS (3)
  - DEEP VEIN THROMBOSIS [None]
  - DRUG INEFFECTIVE [None]
  - REVERSIBLE POSTERIOR LEUKOENCEPHALOPATHY SYNDROME [None]
